FAERS Safety Report 22605282 (Version 1)
Quarter: 2023Q2

REPORT INFORMATION
  Report Type: Spontaneous
  Country: SE (occurrence: SE)
  Receive Date: 20230615
  Receipt Date: 20230615
  Transmission Date: 20230722
  Serious: Yes (Hospitalization)
  Sender: FDA-Public Use
  Company Number: None

PATIENT
  Age: 72 Year
  Sex: Female

DRUGS (15)
  1. CLOPIDOGREL [Suspect]
     Active Substance: CLOPIDOGREL BISULFATE
     Indication: Acute coronary syndrome
     Dosage: 4X1, FOR ACTIVE INGREDIENT CLOPIDOGREL HYDROGEN SULFATE THE STRENGTH IS 97.875 MILLIGRAMS, FOR ACTIV
     Route: 065
     Dates: start: 20230427, end: 20230428
  2. FRAGMIN [Suspect]
     Active Substance: DALTEPARIN SODIUM
     Indication: Thrombosis prophylaxis
     Dosage: 1+1
     Route: 065
     Dates: start: 20230427, end: 20230428
  3. KORTIFARM [Concomitant]
     Indication: Product used for unknown indication
     Dosage: 1+0.5+0.5
     Route: 065
  4. ROSUVASTATIN [Concomitant]
     Active Substance: ROSUVASTATIN
     Indication: Product used for unknown indication
     Dosage: 1X1, FOR ACTIVE INGREDIENT ROSUVASTATIN CALCIUM THE STRENGTH IS 41.68 MILLIGRAMS, FOR ACTIVE INGREDI
     Route: 065
     Dates: start: 20230427, end: 20230428
  5. BETAPRED [Concomitant]
     Active Substance: BETAMETHASONE SODIUM PHOSPHATE
     Indication: Product used for unknown indication
     Dosage: 12X1, FOR ACTIVE INGREDIENT BETAMETHASONE THE STRENGTH IS .5 MILLIGRAM, FOR ACTIVE INGREDIENT BETAME
     Route: 065
     Dates: start: 20230427
  6. CYANOCOBALAMIN [Concomitant]
     Active Substance: CYANOCOBALAMIN
     Indication: Product used for unknown indication
     Dosage: 1X1
     Route: 065
  7. LEVOTHYROXINE SODIUM [Concomitant]
     Active Substance: LEVOTHYROXINE SODIUM
     Indication: Product used for unknown indication
     Dosage: 1X1, FOR ACTIVE INGREDIENT LEVOTHYROXINE THE STRENGTH IS 100 MICROGRAM, FOR ACTIVE INGREDIENT LEVOTH
     Route: 065
  8. CANDESARTAN [Concomitant]
     Active Substance: CANDESARTAN
     Indication: Product used for unknown indication
     Dosage: 2X1
     Route: 065
  9. CEFOTAXIME [Concomitant]
     Active Substance: CEFOTAXIME SODIUM
     Indication: Product used for unknown indication
     Dosage: 2X3, FOR ACTIVE INGREDIENT CEFOTAXIME SODIUM THE STRENGTH IS 2.096 GRAM, FOR ACTIVE INGREDIENT CEFOT
     Route: 065
     Dates: start: 20230427
  10. FLORINEF ACETATE [Concomitant]
     Active Substance: FLUDROCORTISONE ACETATE
     Indication: Product used for unknown indication
     Dosage: 1X1
     Route: 065
  11. POTASSIUM CHLORIDE [Concomitant]
     Active Substance: POTASSIUM CHLORIDE
     Indication: Product used for unknown indication
     Dosage: 2X3
     Route: 065
  12. FELODIPINE [Concomitant]
     Active Substance: FELODIPINE
     Indication: Product used for unknown indication
     Dosage: 1X2
     Route: 065
  13. INSULIN GLARGINE [Concomitant]
     Active Substance: INSULIN GLARGINE
     Indication: Product used for unknown indication
     Dosage: 15EX2
     Route: 065
  14. BISOPROLOL [Concomitant]
     Active Substance: BISOPROLOL
     Indication: Product used for unknown indication
     Dosage: 1X1, FOR ACTIVE INGREDIENT BISOPROLOL THE STRENGTH IS 8.5 MILLIGRAMS, FOR ACTIVE INGREDIENT BISOPROL
     Route: 065
  15. HUMALOG KWICKPEN [Concomitant]
     Indication: Product used for unknown indication
     Dosage: 10EX3
     Route: 065

REACTIONS (3)
  - Abdominal wall haematoma [Unknown]
  - Soft tissue haemorrhage [Unknown]
  - Transfusion [Unknown]

NARRATIVE: CASE EVENT DATE: 20230428
